FAERS Safety Report 15775869 (Version 1)
Quarter: 2018Q4

REPORT INFORMATION
  Report Type: Spontaneous
  Country: DE (occurrence: DE)
  Receive Date: 20181231
  Receipt Date: 20181231
  Transmission Date: 20190205
  Serious: Yes (Other)
  Sender: FDA-Public Use
  Company Number: DE-PROVELL PHARMACEUTICALS-2060705

PATIENT
  Sex: Male

DRUGS (7)
  1. EUTHYROX [Suspect]
     Active Substance: LEVOTHYROXINE SODIUM
  2. EUTHYROX [Suspect]
     Active Substance: LEVOTHYROXINE SODIUM
  3. EUTHYROX [Suspect]
     Active Substance: LEVOTHYROXINE SODIUM
  4. EUTHYROX [Suspect]
     Active Substance: LEVOTHYROXINE SODIUM
  5. EUTHYROX [Suspect]
     Active Substance: LEVOTHYROXINE SODIUM
  6. EUTHYROX [Suspect]
     Active Substance: LEVOTHYROXINE SODIUM
  7. EUTHYROX [Suspect]
     Active Substance: LEVOTHYROXINE SODIUM
     Indication: AUTOIMMUNE THYROIDITIS

REACTIONS (9)
  - Blood pressure decreased [None]
  - Intentional dose omission [None]
  - Decreased appetite [None]
  - Aggression [None]
  - Hypothermia [None]
  - Suicidal ideation [None]
  - Personality change [None]
  - Somnolence [None]
  - Thyroid function test abnormal [None]
